FAERS Safety Report 9976253 (Version 1)
Quarter: 2014Q1

REPORT INFORMATION
  Report Type: Report from Study
  Country: US (occurrence: US)
  Receive Date: 20140306
  Receipt Date: 20140306
  Transmission Date: 20141002
  Serious: No
  Sender: FDA-Public Use
  Company Number: US-ABBVIE-13P-163-1165569-00

PATIENT
  Age: 32 Year
  Sex: Female

DRUGS (7)
  1. HUMIRA [Suspect]
     Indication: RHEUMATOID ARTHRITIS
     Dates: start: 20131016
  2. OXYCODONE [Concomitant]
     Indication: ARTHRALGIA
  3. OMEPRAZOLE [Concomitant]
     Indication: GASTROOESOPHAGEAL REFLUX DISEASE
  4. ASPIRIN [Concomitant]
     Indication: THROMBOSIS PROPHYLAXIS
  5. TYLENOL [Concomitant]
     Indication: PAIN
  6. IBUPROFEN [Concomitant]
     Indication: PAIN
  7. NICOTINE [Concomitant]
     Indication: SMOKING CESSATION THERAPY

REACTIONS (3)
  - Myalgia [Not Recovered/Not Resolved]
  - Injection site erythema [Recovering/Resolving]
  - Injection site pruritus [Not Recovered/Not Resolved]
